FAERS Safety Report 5855879-3 (Version None)
Quarter: 2008Q3

REPORT INFORMATION
  Report Type: 
  Country: None (occurrence: None)
  Receive Date: 20080821
  Receipt Date: 20080821
  Transmission Date: 20090109
  Serious: Yes (Life-Threatening, Other)
  Sender: FDA-Public Use
  Company Number: None

PATIENT
  Age: 51 Year
  Sex: Male
  Weight: 75.7507 kg

DRUGS (1)
  1. CHANTIX [Suspect]

REACTIONS (7)
  - DEPRESSION [None]
  - DYSPEPSIA [None]
  - HYPOPHAGIA [None]
  - INSOMNIA [None]
  - NERVOUSNESS [None]
  - NIGHTMARE [None]
  - SUICIDE ATTEMPT [None]
